FAERS Safety Report 25015731 (Version 1)
Quarter: 2025Q1

REPORT INFORMATION
  Report Type: Report from Study
  Country: US (occurrence: None)
  Receive Date: 20250227
  Receipt Date: 20250227
  Transmission Date: 20250409
  Serious: No
  Sender: Alvotech
  Company Number: US-JAMP PHARMA CORPORATION-2025-JAM-CA-00177

PATIENT
  Age: 54 Year
  Sex: Female
  Weight: 103 kg

DRUGS (1)
  1. USTEKINUMAB-AEKN [Suspect]
     Active Substance: USTEKINUMAB-AEKN
     Indication: Psoriasis
     Route: 065
     Dates: start: 20241024, end: 20250131

REACTIONS (1)
  - Drug effect less than expected [Unknown]
